FAERS Safety Report 19785086 (Version 4)
Quarter: 2021Q4

REPORT INFORMATION
  Report Type: Spontaneous
  Country: NZ (occurrence: NZ)
  Receive Date: 20210903
  Receipt Date: 20211018
  Transmission Date: 20220303
  Serious: Yes (Other)
  Sender: FDA-Public Use
  Company Number: NZ-GSKCCFAPAC-CASE-01291903_AE-48849

PATIENT
  Age: 54 Year
  Sex: Female

DRUGS (2)
  1. VENTOLIN [Suspect]
     Active Substance: ALBUTEROL SULFATE
     Indication: Asthma
     Dosage: UNK MORE THAN 4 PUFFS A DAY
     Route: 055
     Dates: end: 2019
  2. BREO ELLIPTA [Suspect]
     Active Substance: FLUTICASONE FUROATE\VILANTEROL TRIFENATATE
     Indication: Asthma
     Dosage: UNK
     Dates: start: 2019

REACTIONS (13)
  - Drug dependence [Unknown]
  - Asthma [Unknown]
  - Weight decreased [Recovered/Resolved]
  - Weight increased [Unknown]
  - Dizziness [Unknown]
  - Arthralgia [Unknown]
  - Gait inability [Unknown]
  - Anxiety [Unknown]
  - Palpitations [Unknown]
  - Cardiac disorder [Unknown]
  - Condition aggravated [Unknown]
  - Wrong technique in device usage process [Unknown]
  - Product complaint [Unknown]
